FAERS Safety Report 12584258 (Version 2)
Quarter: 2016Q3

REPORT INFORMATION
  Report Type: Spontaneous
  Country: US (occurrence: US)
  Receive Date: 20160722
  Receipt Date: 20160826
  Transmission Date: 20161109
  Serious: No
  Sender: FDA-Public Use
  Company Number: US-GLAXOSMITHKLINE-US2016GSK100975

PATIENT

DRUGS (3)
  1. NITROGLYCERINE [Suspect]
     Active Substance: NITROGLYCERIN
     Indication: PRODUCT USED FOR UNKNOWN INDICATION
  2. BACTROBAN [Suspect]
     Active Substance: MUPIROCIN\MUPIROCIN CALCIUM
     Indication: PRODUCT USED FOR UNKNOWN INDICATION
  3. PREVACID [Suspect]
     Active Substance: LANSOPRAZOLE
     Indication: PRODUCT USED FOR UNKNOWN INDICATION

REACTIONS (9)
  - Musculoskeletal stiffness [Unknown]
  - Migraine [Unknown]
  - Myofascial pain syndrome [Unknown]
  - Drug hypersensitivity [Not Recovered/Not Resolved]
  - Paraesthesia [Unknown]
  - Abdominal pain upper [Unknown]
  - Pruritus [Unknown]
  - Dystonia [Unknown]
  - Burning sensation [Unknown]
